FAERS Safety Report 4874864-1 (Version None)
Quarter: 2006Q1

REPORT INFORMATION
  Report Type: 
  Country: None (occurrence: None)
  Receive Date: 20060104
  Receipt Date: 20051222
  Transmission Date: 20060701
  Serious: Yes (Hospitalization)
  Sender: FDA-Public Use
  Company Number: 2005172411

PATIENT
  Age: 60 Year
  Sex: Male

DRUGS (1)
  1. CABERGOLINE [Suspect]
     Indication: PARKINSON'S DISEASE
     Dosage: 4 MG (4 MG, QD), ORAL
     Route: 048

REACTIONS (2)
  - CARDIAC VALVE DISEASE [None]
  - REFUSAL OF TREATMENT BY PATIENT [None]
